FAERS Safety Report 11558088 (Version 1)
Quarter: 2015Q3

REPORT INFORMATION
  Report Type: Spontaneous
  Country: US (occurrence: None)
  Receive Date: 20150925
  Receipt Date: 20150925
  Transmission Date: 20151125
  Serious: No
  Sender: FDA-Public Use
  Company Number: None

PATIENT
  Age: 64 Year
  Sex: Female
  Weight: 73.8 kg

DRUGS (3)
  1. MIDAZOLAM [Suspect]
     Active Substance: MIDAZOLAM\MIDAZOLAM HYDROCHLORIDE
     Indication: ANXIETY
     Dosage: 1 DOSE ONLY
     Route: 042
     Dates: start: 20150916, end: 20150916
  2. ATROPINE. [Concomitant]
     Active Substance: ATROPINE
  3. GLUCAGON. [Concomitant]
     Active Substance: GLUCAGON

REACTIONS (3)
  - Unresponsive to stimuli [None]
  - Dyskinesia [None]
  - Agitation [None]

NARRATIVE: CASE EVENT DATE: 20150916
